FAERS Safety Report 5834597-1 (Version None)
Quarter: 2008Q3

REPORT INFORMATION
  Report Type: 
  Country: None (occurrence: None)
  Receive Date: 20080805
  Receipt Date: 20080730
  Transmission Date: 20090109
  Serious: Yes (Life-Threatening, Hospitalization)
  Sender: FDA-Public Use
  Company Number: AU-PFIZER INC-2008063577

PATIENT
  Sex: Male
  Weight: 46 kg

DRUGS (17)
  1. IRINOTECAN HCL [Suspect]
     Indication: COLORECTAL CANCER
     Route: 042
  2. BLINDED SU11248 (SU011248) [Suspect]
     Indication: COLORECTAL CANCER
     Route: 048
  3. FLUOROURACIL [Suspect]
     Indication: COLORECTAL CANCER
     Dosage: DAILY DOSE:500MG-FREQ:Q 2 WEEKS
     Route: 042
  4. FLUOROURACIL [Suspect]
     Dosage: DAILY DOSE:2950MG-FREQ:EVERY TWO WEEKS
     Route: 042
  5. CALCIUM FOLINATE [Suspect]
     Indication: COLORECTAL CANCER
     Route: 042
  6. ENOXAPARIN SODIUM [Suspect]
     Dates: start: 20080412, end: 20080724
  7. ACETAMINOPHEN [Concomitant]
     Dosage: DAILY DOSE:1000MG
  8. MOVICOL [Concomitant]
  9. DEXAMETHASONE [Concomitant]
     Dosage: DAILY DOSE:4MG
  10. ALL OTHER THERAPEUTIC PRODUCTS [Concomitant]
     Dosage: DAILY DOSE:2MG
  11. TEMAZE [Concomitant]
     Dosage: DAILY DOSE:10MG
  12. LOPERAMIDE HCL [Concomitant]
     Dosage: DAILY DOSE:2MG
  13. MYLANTA [Concomitant]
  14. ZANTAC [Concomitant]
     Dosage: DAILY DOSE:150MG
  15. DOMPERIDONE [Concomitant]
     Dosage: DAILY DOSE:10MG
  16. PANTOPRAZOLE SODIUM [Concomitant]
     Dosage: DAILY DOSE:40MG
  17. AMOXICILLIN [Concomitant]
     Dosage: DAILY DOSE:500MG
     Dates: start: 20080608, end: 20080712

REACTIONS (2)
  - DIARRHOEA [None]
  - GASTROINTESTINAL HAEMORRHAGE [None]
